FAERS Safety Report 4602379-4 (Version None)
Quarter: 2005Q1

REPORT INFORMATION
  Report Type: 
  Country: None (occurrence: None)
  Receive Date: 20050307
  Receipt Date: 20050222
  Transmission Date: 20050727
  Serious: Yes (Other)
  Sender: FDA-Public Use
  Company Number: 2005035434

PATIENT
  Sex: Female

DRUGS (2)
  1. BENADRYL [Suspect]
     Indication: PROPHYLAXIS
     Dosage: (12.5 MG) INTRAVENOUS
     Route: 042
  2. ALL OTHER THERAPEUTIC PRODUCTS (ALL OTHER THERAPEUTIC PRODUCTS) [Suspect]
     Indication: ILL-DEFINED DISORDER

REACTIONS (6)
  - DRUG TOLERANCE [None]
  - MEDICATION ERROR [None]
  - OROPHARYNGEAL SWELLING [None]
  - SOMNOLENCE [None]
  - SWOLLEN TONGUE [None]
  - VISION BLURRED [None]
